FAERS Safety Report 19722241 (Version 1)
Quarter: 2021Q3

REPORT INFORMATION
  Report Type: Spontaneous
  Country: CA (occurrence: CA)
  Receive Date: 20210819
  Receipt Date: 20210819
  Transmission Date: 20211014
  Serious: Yes (Other)
  Sender: FDA-Public Use
  Company Number: CA-MYLANLABS-2021M1052033

PATIENT

DRUGS (1)
  1. EPIVAL [Suspect]
     Active Substance: DIVALPROEX SODIUM
     Indication: PRODUCT USED FOR UNKNOWN INDICATION
     Dosage: UNK

REACTIONS (9)
  - Fall [Unknown]
  - Gait disturbance [Unknown]
  - Respiratory arrest [Unknown]
  - Dizziness [Unknown]
  - Vomiting [Unknown]
  - Head injury [Unknown]
  - Fatigue [Unknown]
  - Muscular weakness [Unknown]
  - Memory impairment [Unknown]
